FAERS Safety Report 6032746-6 (Version None)
Quarter: 2009Q1

REPORT INFORMATION
  Report Type: 
  Country: None (occurrence: None)
  Receive Date: 20090109
  Receipt Date: 20090102
  Transmission Date: 20090719
  Serious: Yes (Death, Life-Threatening, Hospitalization)
  Sender: FDA-Public Use
  Company Number: CH-ROCHE-572135

PATIENT
  Sex: Male
  Weight: 77 kg

DRUGS (29)
  1. METHOXY POLYETHYLENE GLYCOL-EPOETIN BETA [Suspect]
     Route: 042
     Dates: start: 20080131
  2. METHOXY POLYETHYLENE GLYCOL-EPOETIN BETA [Suspect]
     Dosage: FORM: INJECTION PERMANENTLY DISCONTINUED ON 01 DEC 2008 THE PATIENT DROPPED OUT OF THE STUDY.
     Route: 042
     Dates: end: 20081201
  3. DARBEPOETIN ALFA [Suspect]
     Route: 042
  4. NOVALGIN [Suspect]
     Indication: DRUG USE FOR UNKNOWN INDICATION
     Route: 065
     Dates: start: 20081227
  5. LIQUAEMIN INJ [Suspect]
     Indication: DRUG USE FOR UNKNOWN INDICATION
     Route: 065
     Dates: start: 20081125
  6. PLAVIX [Suspect]
     Indication: DRUG USE FOR UNKNOWN INDICATION
     Route: 065
  7. LISINOPRIL [Concomitant]
     Indication: HYPERTENSION
     Dates: start: 20050906
  8. AMLODIPINE [Concomitant]
     Indication: HYPERTENSION
     Dates: start: 20061027
  9. CLOPIDOGREL [Concomitant]
     Dates: start: 20040518, end: 20081201
  10. CLOPIDOGREL [Concomitant]
     Dates: start: 20081212, end: 20081214
  11. DREISAVIT N [Concomitant]
     Indication: DIALYSIS
     Dates: start: 20040515
  12. LEVOTHYROXINE SODIUM [Concomitant]
     Indication: HYPOTHYROIDISM
     Dosage: DRUG:LEVOTHYROXIN
     Dates: start: 20060321
  13. CALCITRIOL [Concomitant]
     Indication: HYPERPARATHYROIDISM
     Dates: start: 20070901
  14. COSOPT [Concomitant]
     Indication: GLAUCOMA
     Dosage: DOSE FORM:EYE DROPS
     Dates: start: 20070301
  15. PANTOPRAZOLE SODIUM [Concomitant]
     Indication: GASTRITIS
     Dates: start: 20070401
  16. SEVELAMER [Concomitant]
     Dates: start: 20070419, end: 20080104
  17. CALCIUMACETAT [Concomitant]
     Dosage: DRUG ALSO REPORTED AS CALCIUM ACETATE
     Dates: start: 20070426, end: 20080108
  18. TRIATEC [Concomitant]
     Dates: start: 20050906, end: 20081204
  19. ELTROXIN [Concomitant]
     Dosage: DRUG: ELTROXIN TBL.
     Dates: start: 20060321
  20. DAFALGAN [Concomitant]
     Dates: start: 20080814
  21. NOVALGINE [Concomitant]
     Dates: start: 20081125, end: 20081224
  22. TRAVOPROSTUM [Concomitant]
     Route: 047
     Dates: start: 20070301
  23. TRAMADOL HCL [Concomitant]
     Dates: start: 20081125
  24. TRAMADOL HCL [Concomitant]
     Dates: start: 20081205
  25. DIALVIT [Concomitant]
     Dosage: TDD: 1
     Dates: start: 20081125
  26. PRIMPERAN TAB [Concomitant]
     Dates: start: 20081227
  27. DIPIPERON [Concomitant]
     Dosage: DRUG NAME: DIPPERON
     Dates: start: 20081227
  28. CEFUROXIME [Concomitant]
     Dates: start: 20081230
  29. ROCALTROL [Concomitant]
     Dates: start: 20070901

REACTIONS (3)
  - COLITIS ISCHAEMIC [None]
  - GASTRIC HAEMORRHAGE [None]
  - UPPER GASTROINTESTINAL HAEMORRHAGE [None]
